FAERS Safety Report 25842092 (Version 2)
Quarter: 2025Q3

REPORT INFORMATION
  Report Type: Spontaneous
  Country: TW (occurrence: TW)
  Receive Date: 20250924
  Receipt Date: 20250926
  Transmission Date: 20251020
  Serious: Yes (Life-Threatening, Hospitalization, Other)
  Sender: PFIZER
  Company Number: TW-MLMSERVICE-20250915-PI648011-00306-1

PATIENT
  Age: 53 Year
  Sex: Male

DRUGS (3)
  1. METHYLPREDNISOLONE SODIUM SUCCINATE [Suspect]
     Active Substance: METHYLPREDNISOLONE SODIUM SUCCINATE
     Dates: start: 2001
  2. SIROLIMUS [Suspect]
     Active Substance: SIROLIMUS
     Dates: start: 2001
  3. TACROLIMUS [Suspect]
     Active Substance: TACROLIMUS
     Indication: Immunosuppressant drug therapy
     Dates: start: 2001

REACTIONS (1)
  - Bronchopulmonary aspergillosis [Recovering/Resolving]

NARRATIVE: CASE EVENT DATE: 20230101
